FAERS Safety Report 4504267-0 (Version None)
Quarter: 2004Q4

REPORT INFORMATION
  Report Type: 
  Country: None (occurrence: None)
  Receive Date: 20041116
  Receipt Date: 20041104
  Transmission Date: 20050328
  Serious: Yes (Hospitalization)
  Sender: FDA-Public Use
  Company Number: 163-20785-04110122

PATIENT
  Age: 66 Year
  Sex: Female

DRUGS (1)
  1. THALOMID (TAHLIDOMIDE)(50 MILLIGRAM, CAPSULES) [Suspect]
     Indication: MULTIPLE MYELOMA
     Dosage: 50 MG, DAILY, ORAL
     Route: 048
     Dates: start: 20041103

REACTIONS (4)
  - ABDOMINAL PAIN [None]
  - ABNORMAL BEHAVIOUR [None]
  - BACTERAEMIA [None]
  - HALLUCINATION [None]
